FAERS Safety Report 7669218-9 (Version None)
Quarter: 2011Q3

REPORT INFORMATION
  Report Type: 
  Country: None (occurrence: None)
  Receive Date: 20110808
  Receipt Date: 20110725
  Transmission Date: 20111222
  Serious: Yes (Hospitalization, Other)
  Sender: FDA-Public Use
  Company Number: PHHY2011FR67892

PATIENT
  Sex: Male
  Weight: 75 kg

DRUGS (12)
  1. HYDROXYZINE HCL [Concomitant]
     Route: 048
  2. PAROXETINE HCL [Concomitant]
     Route: 048
  3. ESOMEPRAZOLE MAGNESIUM [Concomitant]
     Route: 048
  4. CLOZAPINE [Suspect]
     Dosage: 200 MG, DAILY
     Dates: start: 20110204
  5. CLOZAPINE [Suspect]
     Dosage: 425 MG, DAILY
     Route: 048
     Dates: start: 20110114
  6. DEPAKENE [Concomitant]
     Dosage: 2000 MG, DAILY
  7. CLOZAPINE [Suspect]
     Dosage: 350 MG, DAILY
     Dates: start: 20110119
  8. SECTRAL [Concomitant]
     Route: 048
  9. CLOZAPINE [Suspect]
     Route: 048
     Dates: start: 20080101
  10. CLOZAPINE [Suspect]
     Dosage: 450 MG, DAILY
     Route: 048
     Dates: start: 20101001
  11. DEPAKENE [Concomitant]
     Indication: EPILEPSY
     Route: 048
  12. DEPAKENE [Concomitant]
     Dosage: 1500 MG, DAILY

REACTIONS (8)
  - CLONIC CONVULSION [None]
  - RENAL IMPAIRMENT [None]
  - EPILEPSY [None]
  - CLONUS [None]
  - BLOOD UREA INCREASED [None]
  - ANTIPSYCHOTIC DRUG LEVEL INCREASED [None]
  - BLOOD CREATININE INCREASED [None]
  - BRAIN INJURY [None]
